FAERS Safety Report 4834146-0 (Version None)
Quarter: 2005Q4

REPORT INFORMATION
  Report Type: 
  Country: None (occurrence: None)
  Receive Date: 20051122
  Receipt Date: 20051114
  Transmission Date: 20060501
  Serious: Yes (Other)
  Sender: FDA-Public Use
  Company Number: US-JNJFOC-20050802342

PATIENT
  Sex: Female
  Weight: 84.82 kg

DRUGS (4)
  1. DOXIL [Suspect]
     Route: 042
  2. DOXIL [Suspect]
     Route: 042
  3. DOXIL [Suspect]
     Route: 042
  4. DOXIL [Suspect]
     Indication: OVARIAN CANCER
     Route: 042

REACTIONS (1)
  - ULCERATIVE KERATITIS [None]
